FAERS Safety Report 8894944 (Version 2)
Quarter: 2012Q4

REPORT INFORMATION
  Report Type: 
  Country: IT (occurrence: IT)
  Receive Date: 20121108
  Receipt Date: 20121114
  Transmission Date: 20130627
  Serious: Yes (Hospitalization)
  Sender: FDA-Public Use
  Company Number: IT-TEVA-367216ISR

PATIENT
  Age: 61 Year
  Sex: Female

DRUGS (1)
  1. DICLOFENAC [Suspect]
     Indication: SCIATICA
     Dosage: 75 Milligram Daily;
     Route: 030
     Dates: start: 20121018, end: 20121018

REACTIONS (2)
  - Angioedema [Recovered/Resolved]
  - Dysphonia [Recovered/Resolved]
